FAERS Safety Report 8923318 (Version 1)
Quarter: 2012Q4

REPORT INFORMATION
  Report Type: Spontaneous
  Country: US (occurrence: None)
  Receive Date: 20121114
  Receipt Date: 20121114
  Transmission Date: 20130627
  Serious: Yes (Other)
  Sender: FDA-Public Use
  Company Number: DSA_60817_2012

PATIENT

DRUGS (4)
  1. FLUOROURACIL [Suspect]
     Indication: COLORECTAL CANCER METASTATIC
     Dosage: 400 MG/M2 INTRAVENOUS BOLUS
     Route: 040
  2. OXALIPLATIN [Suspect]
     Indication: COLORECTAL CANCER METASTATIC
     Dosage: 100 MG/M2; OVER 2 HOURS INTRAVENOUS
     Route: 042
  3. CAPECITABINE [Suspect]
     Dosage: MG/M2; EVERY 8 HOURS ORAL
     Route: 048
  4. LEUCOVORIN [Suspect]
     Indication: COLORECTAL CANCER METASTATIC
     Dosage: 20 MG/M2 INTRAVENOUS BOLUS
     Route: 040

REACTIONS (1)
  - Urogenital fistula [None]
